FAERS Safety Report 7215296-0 (Version None)
Quarter: 2011Q1

REPORT INFORMATION
  Report Type: 
  Country: None (occurrence: None)
  Receive Date: 20110107
  Receipt Date: 20101004
  Transmission Date: 20110831
  Serious: No
  Sender: FDA-Public Use
  Company Number: US-BAYER-201022265BCC

PATIENT
  Sex: Female
  Weight: 54.545 kg

DRUGS (1)
  1. ALEVE [Suspect]
     Indication: PAIN
     Dosage: UNK
     Route: 048
     Dates: start: 20101003

REACTIONS (1)
  - FOREIGN BODY [None]
